FAERS Safety Report 6243256-5 (Version None)
Quarter: 2009Q2

REPORT INFORMATION
  Report Type: 
  Country: None (occurrence: None)
  Receive Date: 20090624
  Receipt Date: 20090617
  Transmission Date: 20091009
  Serious: Yes (Hospitalization)
  Sender: FDA-Public Use
  Company Number: US-BRISTOL-MYERS SQUIBB COMPANY-14285282

PATIENT
  Age: 76 Year
  Sex: Male
  Weight: 53 kg

DRUGS (6)
  1. CETUXIMAB [Suspect]
     Indication: ADENOCARCINOMA PANCREAS
     Dosage: THERAPY START DATE 24OCT07
     Route: 042
     Dates: start: 20071106, end: 20071106
  2. BEVACIZUMAB [Suspect]
     Indication: ADENOCARCINOMA PANCREAS
     Dosage: THERAPY START DATE 24OCT07
     Route: 042
     Dates: start: 20071106, end: 20071106
  3. CELEBREX [Concomitant]
     Route: 048
     Dates: start: 20071025, end: 20071028
  4. IBUPROFEN [Concomitant]
     Route: 048
  5. DIPHENHYDRAMINE HCL [Concomitant]
     Route: 048
  6. TERAZOSIN HCL [Concomitant]
     Route: 048

REACTIONS (3)
  - DIARRHOEA [None]
  - GASTROINTESTINAL HAEMORRHAGE [None]
  - HYPOTENSION [None]
